FAERS Safety Report 25824653 (Version 1)
Quarter: 2025Q3

REPORT INFORMATION
  Report Type: Spontaneous
  Country: JP (occurrence: JP)
  Receive Date: 20250919
  Receipt Date: 20250919
  Transmission Date: 20251020
  Serious: Yes (Hospitalization, Other)
  Sender: MERCK SHARP & DOHME LLC
  Company Number: JP-009507513-2328971

PATIENT
  Age: 8 Decade
  Sex: Male

DRUGS (3)
  1. KEYTRUDA [Suspect]
     Active Substance: PEMBROLIZUMAB
     Indication: Bile duct cancer
     Dosage: 200 MG, Q3W, 3 COURSES
     Route: 042
     Dates: start: 202506, end: 202508
  2. GEMCITABINE [Suspect]
     Active Substance: GEMCITABINE
     Indication: Bile duct cancer
     Dosage: 1000 MG/M^2, Q2W
     Route: 042
     Dates: start: 202506, end: 202508
  3. CISPLATIN [Suspect]
     Active Substance: CISPLATIN
     Indication: Bile duct cancer
     Dosage: 25 MG/M^2, Q2W
     Route: 042
     Dates: start: 202506, end: 202508

REACTIONS (5)
  - Malignant neoplasm progression [Not Recovered/Not Resolved]
  - Jaundice [Unknown]
  - Platelet count decreased [Unknown]
  - Malignant ascites [Unknown]
  - Haemobilia [Unknown]

NARRATIVE: CASE EVENT DATE: 20250101
